FAERS Safety Report 16681601 (Version 1)
Quarter: 2019Q3

REPORT INFORMATION
  Report Type: Spontaneous
  Country: US (occurrence: US)
  Receive Date: 20190807
  Receipt Date: 20190807
  Transmission Date: 20191007
  Serious: Yes (Hospitalization)
  Sender: FDA-Public Use
  Company Number: None

PATIENT
  Age: 50 Year
  Sex: Female

DRUGS (1)
  1. LOSARTAN. [Suspect]
     Active Substance: LOSARTAN

REACTIONS (6)
  - Dizziness [None]
  - Migraine [None]
  - Transient ischaemic attack [None]
  - Malaise [None]
  - Confusional state [None]
  - Decreased appetite [None]

NARRATIVE: CASE EVENT DATE: 20190802
